FAERS Safety Report 6925267-7 (Version None)
Quarter: 2010Q3

REPORT INFORMATION
  Report Type: 
  Country: None (occurrence: None)
  Receive Date: 20100816
  Receipt Date: 20100805
  Transmission Date: 20110219
  Serious: Yes (Death)
  Sender: FDA-Public Use
  Company Number: CA-JNJCH-2009031675

PATIENT

DRUGS (1)
  1. ASPIRIN [Suspect]
     Indication: DRUG EXPOSURE DURING PREGNANCY
     Dosage: TEXT:50 TABLETS/D X 1 MO
     Route: 064

REACTIONS (2)
  - DRUG EXPOSURE DURING PREGNANCY [None]
  - THERAPEUTIC AGENT TOXICITY [None]
